FAERS Safety Report 25217009 (Version 1)
Quarter: 2025Q2

REPORT INFORMATION
  Report Type: Spontaneous
  Country: US (occurrence: US)
  Receive Date: 20250419
  Receipt Date: 20250419
  Transmission Date: 20250716
  Serious: No
  Sender: MANKIND PHARMA
  Company Number: US-MankindUS-000343

PATIENT

DRUGS (5)
  1. PRAZOSIN HYDROCHLORIDE [Suspect]
     Active Substance: PRAZOSIN HYDROCHLORIDE
     Indication: Sleep disorder
     Dosage: PRAZOSIN 2MG TAKING 3 CAPSULES (6MG) AT BEDTIME
  2. MELATONIN [Concomitant]
     Active Substance: MELATONIN
     Route: 060
  3. MAGNESIUM [Concomitant]
     Active Substance: MAGNESIUM
  4. CHLORPHENIRAMINE [Concomitant]
     Active Substance: CHLORPHENIRAMINE
  5. ZINC [Concomitant]
     Active Substance: ZINC

REACTIONS (1)
  - Drug ineffective for unapproved indication [Unknown]
